FAERS Safety Report 8618566 (Version 2)
Quarter: 2014Q1

REPORT INFORMATION
  Report Type: Spontaneous
  Country: US (occurrence: None)
  Receive Date: 20120323
  Receipt Date: 20130305
  Transmission Date: 20141002
  Serious: Yes (Hospitalization)
  Sender: FDA-Public Use
  Company Number: 163-21880-11122012

PATIENT
  Age: 59 Year
  Sex: Male

DRUGS (14)
  1. REVLIMID [Suspect]
     Indication: PLASMA CELL MYELOMA
     Dosage: 5 MG, 3 DAYS A WEEK, PO
     Route: 048
     Dates: start: 20110113
  2. ACYCLOVIR (ACICLOVIR) (TABLETS) [Concomitant]
  3. CHLORHEXIDINE GLUCONATE [Concomitant]
  4. DOXYCYCLINE HYCLATE (DOXYCYCLINE HYCLATE) [Concomitant]
  5. METRONIDAZOLE (METRONIDAZOLE) (TABLETS) (METRONIDAZOLE) [Concomitant]
  6. CLINDAMYCIN (CLINDAMYCIN) (CAPSULES) [Concomitant]
  7. AMOXICILLIN (AMOXICILLIN) (CAPSULES) [Concomitant]
  8. NON-ASPIRIN (PARACETAMOL) [Concomitant]
  9. GENTAMICIN (GENTAMICIN) (0.1 PERCENT, CREAM) [Concomitant]
  10. FISH OIL (FISH OIL) (CAPSULES) [Concomitant]
  11. TUMS (CALCIUM CARBONATE) [Concomitant]
  12. ASPIRIN (ACETYLSALICYLIC ACID) [Concomitant]
  13. RENAL SOFTGEL (RENALTABS) (CAPSULES) [Concomitant]
  14. FLUCONAZOLE (FLUCONAZOLE) (TABLETS) [Concomitant]

REACTIONS (3)
  - Tooth infection [None]
  - White blood cell count decreased [None]
  - Platelet count decreased [None]
